FAERS Safety Report 9875662 (Version 2)
Quarter: 2014Q1

REPORT INFORMATION
  Report Type: Other
  Country: US (occurrence: US)
  Receive Date: 20140206
  Receipt Date: 20140206
  Transmission Date: 20141002
  Serious: No
  Sender: FDA-Public Use
  Company Number: US-ACORDA-ACO_36749_2013

PATIENT
  Age: 46 Year
  Sex: Female
  Weight: 58.96 kg

DRUGS (3)
  1. AMPYRA [Suspect]
     Indication: GAIT DISTURBANCE
     Dosage: 10 MG, QD
     Route: 048
     Dates: start: 201306, end: 201306
  2. CYMBALTA [Concomitant]
     Indication: ANXIETY
     Dosage: 30 MG, 1 QHS
     Route: 048
  3. ALPRAZOLAM [Concomitant]
     Indication: ANXIETY
     Dosage: .5 MG, 1 TO 2/DAY
     Route: 048

REACTIONS (1)
  - Pain in extremity [Recovered/Resolved]
